FAERS Safety Report 7596340-8 (Version None)
Quarter: 2011Q3

REPORT INFORMATION
  Report Type: 
  Country: None (occurrence: None)
  Receive Date: 20110707
  Receipt Date: 20110629
  Transmission Date: 20111222
  Serious: Yes (Other)
  Sender: FDA-Public Use
  Company Number: BR-BAXTER-2011BH021553

PATIENT
  Age: 52 Year
  Sex: Male
  Weight: 100 kg

DRUGS (3)
  1. LOSARTAN POTASSIUM [Concomitant]
     Indication: HYPERTENSION
     Route: 048
  2. INSULIN [Concomitant]
     Indication: DIABETES MELLITUS
     Route: 065
  3. DIANEAL [Suspect]
     Indication: RENAL FAILURE CHRONIC
     Route: 033
     Dates: end: 20110601

REACTIONS (1)
  - INFECTIOUS PERITONITIS [None]
